FAERS Safety Report 19665657 (Version 2)
Quarter: 2022Q1

REPORT INFORMATION
  Report Type: Spontaneous
  Country: US (occurrence: US)
  Receive Date: 20210806
  Receipt Date: 20220202
  Transmission Date: 20220423
  Serious: Yes (Other)
  Sender: FDA-Public Use
  Company Number: US-GILEAD-2021-0542438

PATIENT
  Age: 65 Year
  Sex: Female
  Weight: 71.21 kg

DRUGS (63)
  1. ATRIPLA [Suspect]
     Active Substance: EFAVIRENZ\EMTRICITABINE\TENOFOVIR DISOPROXIL FUMARATE
     Indication: HIV infection
     Dosage: UNK
     Route: 048
     Dates: start: 2011
  2. ATRIPLA [Suspect]
     Active Substance: EFAVIRENZ\EMTRICITABINE\TENOFOVIR DISOPROXIL FUMARATE
     Dosage: UNK
     Route: 048
     Dates: start: 201212, end: 201409
  3. STRIBILD [Suspect]
     Active Substance: COBICISTAT\ELVITEGRAVIR\EMTRICITABINE\TENOFOVIR DISOPROXIL FUMARATE
     Indication: HIV infection
     Dosage: UNK
     Route: 048
     Dates: start: 2011
  4. STRIBILD [Suspect]
     Active Substance: COBICISTAT\ELVITEGRAVIR\EMTRICITABINE\TENOFOVIR DISOPROXIL FUMARATE
     Dosage: UNK
     Route: 048
     Dates: start: 201409, end: 201606
  5. BIKTARVY [Concomitant]
     Active Substance: BICTEGRAVIR SODIUM\EMTRICITABINE\TENOFOVIR ALAFENAMIDE FUMARATE
  6. DESCOVY [Concomitant]
     Active Substance: EMTRICITABINE\TENOFOVIR ALAFENAMIDE FUMARATE
  7. GENVOYA [Concomitant]
     Active Substance: COBICISTAT\ELVITEGRAVIR\EMTRICITABINE\TENOFOVIR ALAFENAMIDE FUMARATE
  8. TIVICAY [Concomitant]
     Active Substance: DOLUTEGRAVIR SODIUM
  9. ATORVASTATIN [Concomitant]
     Active Substance: ATORVASTATIN
  10. BASAGLAR [Concomitant]
     Active Substance: INSULIN GLARGINE
  11. INSULIN NOS [Concomitant]
     Active Substance: INSULIN NOS
  12. BECONASE AQ [Concomitant]
     Active Substance: BECLOMETHASONE DIPROPIONATE MONOHYDRATE
  13. BYDUREON [Concomitant]
     Active Substance: EXENATIDE
  14. CALCIUM [Concomitant]
     Active Substance: CALCIUM
  15. CHLORHEXIDINE [Concomitant]
     Active Substance: CHLORHEXIDINE
  16. CIPROFLOXACIN [Concomitant]
     Active Substance: CIPROFLOXACIN
  17. CRESTOR [Concomitant]
     Active Substance: ROSUVASTATIN CALCIUM
  18. DOCQLACE [Concomitant]
     Active Substance: DOCUSATE SODIUM
  19. ERYTHROMYCIN [Concomitant]
     Active Substance: ERYTHROMYCIN
  20. EZETIMIBE [Concomitant]
     Active Substance: EZETIMIBE
  21. FERROUS SULFATE [Concomitant]
     Active Substance: FERROUS SULFATE
  22. FLUCONAZOLE [Concomitant]
     Active Substance: FLUCONAZOLE
  23. FLUTICASONE [Concomitant]
     Active Substance: FLUTICASONE
  24. FLUVIRINE [Concomitant]
  25. GABAPENTIN [Concomitant]
     Active Substance: GABAPENTIN
  26. GLIPIZIDE [Concomitant]
     Active Substance: GLIPIZIDE
  27. GLYBURIDE [Concomitant]
     Active Substance: GLYBURIDE
  28. HUMALOG [Concomitant]
     Active Substance: INSULIN LISPRO
  29. HUMULINE [Concomitant]
  30. HYDROCODONE [Concomitant]
     Active Substance: HYDROCODONE
  31. JANUVIA [Concomitant]
     Active Substance: SITAGLIPTIN PHOSPHATE
  32. LANTUS [Concomitant]
     Active Substance: INSULIN GLARGINE
  33. LEVOFLOXACIN [Concomitant]
     Active Substance: LEVOFLOXACIN
  34. LIDOCAINE [Concomitant]
     Active Substance: LIDOCAINE
  35. LISINOPRIL [Concomitant]
     Active Substance: LISINOPRIL
  36. AMOXICILLIN [Concomitant]
     Active Substance: AMOXICILLIN
  37. LORATADINE [Concomitant]
     Active Substance: LORATADINE
  38. MELATONIN [Concomitant]
     Active Substance: MELATONIN
  39. METFORMIN [Concomitant]
     Active Substance: METFORMIN HYDROCHLORIDE
  40. METRONIDAZOLE [Concomitant]
     Active Substance: METRONIDAZOLE
  41. VITAMINS NOS [Concomitant]
     Active Substance: VITAMINS
  42. NAPROXEN [Concomitant]
     Active Substance: NAPROXEN
  43. NITROFURANTOIN [Concomitant]
     Active Substance: NITROFURANTOIN
  44. NOVOLOG [Concomitant]
     Active Substance: INSULIN ASPART
  45. OLOPATADINE [Concomitant]
     Active Substance: OLOPATADINE
  46. OMEPRAZOLE [Concomitant]
     Active Substance: OMEPRAZOLE
  47. DEXTROSE [Concomitant]
     Active Substance: DEXTROSE
  48. PHENAZOPYRIDINE [Concomitant]
     Active Substance: PHENAZOPYRIDINE
  49. HIGH DENSITY POLYETHYLENE [Concomitant]
     Active Substance: HIGH DENSITY POLYETHYLENE
  50. POLYMYXIN [Concomitant]
     Active Substance: POLYMYXIN
  51. PREDNISOLONE [Concomitant]
     Active Substance: PREDNISOLONE
  52. PRINIVIL [Concomitant]
     Active Substance: LISINOPRIL
  53. ROSUVASTATIN [Concomitant]
     Active Substance: ROSUVASTATIN
  54. SHINGRIX [Concomitant]
     Active Substance: RECOMBINANT VARICELLA ZOSTER VIRUS (VZV) GLYCOPROTEIN E
  55. SULFAMETHOXAZOLE [Concomitant]
     Active Substance: SULFAMETHOXAZOLE
  56. TRUEPLUS GLUCOSE [Concomitant]
  57. TRULICITY [Concomitant]
     Active Substance: DULAGLUTIDE
  58. TYLENOL [Concomitant]
     Active Substance: ACETAMINOPHEN
  59. VITAMIN D NOS [Concomitant]
     Active Substance: VITAMIN D NOS
  60. VITAMIN D2 [Concomitant]
     Active Substance: ERGOCALCIFEROL
  61. VITAMIN D3 [Concomitant]
     Active Substance: CHOLECALCIFEROL
  62. OMEGA-3 FATTY ACIDS [Concomitant]
     Active Substance: OMEGA-3 FATTY ACIDS
  63. ASPIRIN [Concomitant]
     Active Substance: ASPIRIN

REACTIONS (9)
  - Osteoporosis [Unknown]
  - Bone density decreased [Unknown]
  - Emotional distress [Not Recovered/Not Resolved]
  - Anhedonia [Not Recovered/Not Resolved]
  - Anxiety [Not Recovered/Not Resolved]
  - Proteinuria [Unknown]
  - Pain [Not Recovered/Not Resolved]
  - Renal impairment [Not Recovered/Not Resolved]
  - Depression [Not Recovered/Not Resolved]

NARRATIVE: CASE EVENT DATE: 20170501
